FAERS Safety Report 14105637 (Version 1)
Quarter: 2017Q4

REPORT INFORMATION
  Report Type: Spontaneous
  Country: US (occurrence: US)
  Receive Date: 20171018
  Receipt Date: 20171018
  Transmission Date: 20180321
  Serious: Yes (Hospitalization, Other)
  Sender: FDA-Public Use
  Company Number: US-CELGENEUS-USA-20171003661

PATIENT
  Age: 70 Year
  Sex: Male
  Weight: 134.38 kg

DRUGS (1)
  1. REVLIMID [Suspect]
     Active Substance: LENALIDOMIDE
     Indication: PLASMA CELL MYELOMA
     Dosage: 25 MILLIGRAM
     Route: 048
     Dates: start: 201708

REACTIONS (3)
  - Dizziness [Unknown]
  - Renal failure [Unknown]
  - Oedema [Unknown]

NARRATIVE: CASE EVENT DATE: 2017
